FAERS Safety Report 21310903 (Version 1)
Quarter: 2022Q3

REPORT INFORMATION
  Report Type: Other
  Country: CN (occurrence: None)
  Receive Date: 20220909
  Receipt Date: 20220909
  Transmission Date: 20221026
  Serious: Yes (Death)
  Sender: FDA-Public Use
  Company Number: CN-ROCHE-2803837

PATIENT
  Age: 52 Year
  Sex: Male
  Weight: 63 kg

DRUGS (1)
  1. AVASTIN [Suspect]
     Active Substance: BEVACIZUMAB
     Indication: Non-small cell lung cancer
     Dosage: FORM OF ADMIN: 100 MG
     Route: 041
     Dates: start: 20170412

REACTIONS (2)
  - Decreased appetite [Unknown]
  - Metastases to central nervous system [Fatal]
